FAERS Safety Report 7778810-2 (Version None)
Quarter: 2011Q3

REPORT INFORMATION
  Report Type: 
  Country: None (occurrence: None)
  Receive Date: 20110926
  Receipt Date: 20110916
  Transmission Date: 20111222
  Serious: Yes (Hospitalization, Other)
  Sender: FDA-Public Use
  Company Number: ES-JNJFOC-20110906498

PATIENT
  Sex: Male
  Weight: 93 kg

DRUGS (3)
  1. DEPAKENE [Concomitant]
     Indication: EPILEPSY
  2. STELARA [Suspect]
     Indication: PSORIASIS
     Route: 058
     Dates: start: 20110414
  3. STELARA [Suspect]
     Route: 058
     Dates: start: 20100125, end: 20100812

REACTIONS (3)
  - PULMONARY HYPERTENSION [None]
  - SLEEP APNOEA SYNDROME [None]
  - CHRONIC OBSTRUCTIVE PULMONARY DISEASE [None]
